FAERS Safety Report 7162418-6 (Version None)
Quarter: 2010Q4

REPORT INFORMATION
  Report Type: 
  Country: None (occurrence: None)
  Receive Date: 20101215
  Receipt Date: 20101213
  Transmission Date: 20110411
  Serious: Yes (Death)
  Sender: FDA-Public Use
  Company Number: CN-ROCHE-747484

PATIENT
  Sex: Female

DRUGS (3)
  1. MYCOPHENOLATE MOFETIL [Suspect]
     Indication: LIVER TRANSPLANT
     Route: 065
     Dates: start: 20090623
  2. CYCLOSPORINE [Concomitant]
     Indication: LIVER TRANSPLANT
     Dates: start: 20090623
  3. STEROID NOS [Concomitant]
     Indication: LIVER TRANSPLANT
     Dates: start: 20090623

REACTIONS (1)
  - DEATH [None]
